FAERS Safety Report 8478050-8 (Version None)
Quarter: 2012Q2

REPORT INFORMATION
  Report Type: 
  Country: None (occurrence: None)
  Receive Date: 20120629
  Receipt Date: 20110829
  Transmission Date: 20120825
  Serious: No
  Sender: FDA-Public Use
  Company Number: US-GLAXOSMITHKLINE-A0943628A

PATIENT
  Sex: Female

DRUGS (2)
  1. ZYBAN [Suspect]
     Indication: EX-TOBACCO USER
     Route: 065
  2. UNKNOWN [Concomitant]

REACTIONS (1)
  - HYPERSENSITIVITY [None]
